FAERS Safety Report 7077527 (Version 3)
Quarter: 2019Q2

REPORT INFORMATION
  Report Type: Spontaneous
  Country: FR (occurrence: FR)
  Receive Date: 20090810
  Receipt Date: 20190528
  Transmission Date: 20190711
  Serious: Yes (Life-Threatening, Hospitalization)
  Sender: FDA-Public Use
  Company Number: FR-SANOFI-AVENTIS-A02200901984

PATIENT
  Age: 58 Year
  Sex: Male
  Weight: 78 kg

DRUGS (23)
  1. ELOXATIN [Suspect]
     Active Substance: OXALIPLATIN
     Dosage: 85 MG/M2, Q3W
     Route: 042
     Dates: start: 20090514, end: 20090514
  2. FENTANYL. [Suspect]
     Active Substance: FENTANYL
     Indication: PRODUCT USED FOR UNKNOWN INDICATION
     Dosage: 75 UG, Q3D
     Route: 062
     Dates: start: 20090528, end: 20090528
  3. ERBITUX [Suspect]
     Active Substance: CETUXIMAB
     Indication: METASTASES TO PERITONEUM
     Dosage: 500 MG/M2,QM
     Route: 042
     Dates: start: 20090528, end: 20090701
  4. KARDEGIC [Concomitant]
     Active Substance: ASPIRIN DL-LYSINE
     Indication: PRODUCT USED FOR UNKNOWN INDICATION
     Dosage: 75 MG,UNK
     Route: 048
     Dates: start: 200904
  5. EMEND [Concomitant]
     Active Substance: APREPITANT
     Indication: ANTIEMETIC SUPPORTIVE CARE
     Dosage: UNK UNK, UNK
     Route: 065
  6. ELOXATIN [Suspect]
     Active Substance: OXALIPLATIN
     Dosage: 100 MG/M2,Q3W
     Route: 042
     Dates: start: 20090528, end: 20090528
  7. ISOPTIN [VERAPAMIL] [Concomitant]
     Indication: PRODUCT USED FOR UNKNOWN INDICATION
     Dosage: 250 MG,UNK
     Route: 048
     Dates: start: 200904
  8. HYPERIUM [Concomitant]
     Active Substance: RILMENIDINE PHOSPHATE
     Indication: PRODUCT USED FOR UNKNOWN INDICATION
     Dosage: 1 MG, BID
     Route: 048
     Dates: start: 200904
  9. EMEND [Concomitant]
     Active Substance: APREPITANT
     Dosage: UNK
     Route: 065
  10. TAHOR [Concomitant]
     Active Substance: ATORVASTATIN CALCIUM
     Indication: PRODUCT USED FOR UNKNOWN INDICATION
     Dosage: 20 MG,QD
     Route: 048
     Dates: start: 200904
  11. ELOXATIN [Suspect]
     Active Substance: OXALIPLATIN
     Indication: METASTASES TO PERITONEUM
     Dosage: 85 MG/M2, Q3W
     Route: 042
     Dates: start: 20090430, end: 20090430
  12. FENTANYL. [Suspect]
     Active Substance: FENTANYL
     Dosage: 75 UG, Q3D
     Route: 003
     Dates: start: 20090528, end: 20090703
  13. URAPIDIL [Concomitant]
     Active Substance: URAPIDIL
     Indication: PRODUCT USED FOR UNKNOWN INDICATION
     Dosage: 60 MG,TID
     Route: 048
     Dates: start: 200904
  14. HYPERIUM [Concomitant]
     Active Substance: RILMENIDINE PHOSPHATE
     Dosage: 1 MG, QD
     Route: 048
  15. SEVREDOL [Concomitant]
     Active Substance: MORPHINE
     Indication: PRODUCT USED FOR UNKNOWN INDICATION
     Dosage: UNK UNK, UNK
     Route: 065
  16. PRIMPERAN [Concomitant]
     Active Substance: METOCLOPRAMIDE HYDROCHLORIDE
     Indication: ANTIEMETIC SUPPORTIVE CARE
     Dosage: UNK UNK, UNK
     Route: 065
  17. EUPRESSYL [URAPIDIL] [Concomitant]
     Active Substance: URAPIDIL
     Indication: PRODUCT USED FOR UNKNOWN INDICATION
     Dosage: 60 MG, QD
     Route: 048
  18. ELOXATIN [Suspect]
     Active Substance: OXALIPLATIN
     Dosage: 100 MG/M2, Q3W
     Route: 042
     Dates: start: 20090701, end: 20090701
  19. FLUOROURACIL. [Suspect]
     Active Substance: FLUOROURACIL
     Indication: METASTASES TO PERITONEUM
     Dosage: 3000 MG/M2, Q3W
     Route: 041
     Dates: start: 20090430, end: 20090430
  20. FLUOROURACIL. [Suspect]
     Active Substance: FLUOROURACIL
     Dosage: 3000 MG/M2,Q3W
     Route: 042
     Dates: start: 20090528, end: 20090528
  21. FLUOROURACIL. [Suspect]
     Active Substance: FLUOROURACIL
     Dosage: 3000 MG/M2, Q3W
     Route: 041
     Dates: start: 20090703, end: 20090703
  22. OMIX [Concomitant]
     Active Substance: TAMSULOSIN HYDROCHLORIDE
     Indication: PRODUCT USED FOR UNKNOWN INDICATION
     Dosage: .4 MG,QD
     Route: 048
     Dates: start: 200904
  23. ZOPHREN [ONDANSETRON] [Concomitant]
     Active Substance: ONDANSETRON
     Indication: ANTIEMETIC SUPPORTIVE CARE
     Dosage: UNK UNK, UNK
     Route: 065

REACTIONS (2)
  - Coma [Recovered/Resolved]
  - Seizure [Recovered/Resolved]

NARRATIVE: CASE EVENT DATE: 20090530
